FAERS Safety Report 8966964 (Version 2)
Quarter: 2013Q1

REPORT INFORMATION
  Report Type: Report from Study
  Country: JP (occurrence: JP)
  Receive Date: 20121214
  Receipt Date: 20130104
  Transmission Date: 20140127
  Serious: Yes (Hospitalization, Other)
  Sender: FDA-Public Use
  Company Number: JP-PFIZER INC-2012307895

PATIENT
  Age: 57 Year
  Sex: Male
  Weight: 65 kg

DRUGS (32)
  1. MEDROL [Suspect]
     Indication: PROPHYLAXIS AGAINST TRANSPLANT REJECTION
     Dosage: 40 MG, 1X/DAY
     Route: 048
     Dates: start: 20080401
  2. MEDROL [Suspect]
     Dosage: 4 MG, 1X/DAY
     Route: 048
     Dates: end: 20091228
  3. MEDROL [Suspect]
     Dosage: 8 MG, 1X/DAY
     Route: 048
     Dates: start: 20091229
  4. MYCOPHENOLATE MOFETIL [Suspect]
     Indication: PROPHYLAXIS AGAINST TRANSPLANT REJECTION
     Dosage: 2000 MG, 1X/DAY
     Route: 048
     Dates: start: 20090310, end: 20090419
  5. MYCOPHENOLATE MOFETIL [Suspect]
     Dosage: 1750 MG, 1X/DAY
     Route: 048
     Dates: start: 20090420, end: 20090420
  6. MYCOPHENOLATE MOFETIL [Suspect]
     Dosage: 1250 MG, 1X/DAY
     Route: 048
     Dates: start: 20090421, end: 20090421
  7. MYCOPHENOLATE MOFETIL [Suspect]
     Dosage: 1000 MG, 1X/DAY
     Route: 048
     Dates: start: 20090422, end: 20091228
  8. SIMULECT [Suspect]
     Indication: PROPHYLAXIS AGAINST TRANSPLANT REJECTION
     Dosage: 20 MG, 1X/DAY
     Route: 042
     Dates: start: 20090309, end: 20090309
  9. SIMULECT [Suspect]
     Dosage: 20 MG, 1X/DAY
     Route: 042
     Dates: start: 20090313, end: 20090313
  10. NEORAL [Suspect]
     Indication: PROPHYLAXIS AGAINST TRANSPLANT REJECTION
     Dosage: 225 MG, 2X/DAY
     Route: 048
     Dates: start: 20090311
  11. MAALOX [Concomitant]
     Dosage: 3.6 G, 3X/DAY
     Route: 048
     Dates: start: 20090310
  12. PERSANTIN [Concomitant]
     Dosage: 10 MG, 1X/DAY
     Route: 048
     Dates: start: 20090310
  13. PARIET [Concomitant]
     Dosage: 20MG, 1 D
     Route: 048
     Dates: start: 20090310
  14. LASIX [Concomitant]
     Dosage: 20 MG, 1 D
     Route: 048
     Dates: start: 20090318
  15. ARGAMATE [Concomitant]
     Dosage: 75 MG, 2X/DAY
     Route: 048
     Dates: start: 20090323
  16. AMLODIN [Concomitant]
     Dosage: UNK
     Route: 048
     Dates: start: 20090325
  17. DETANTOL R [Concomitant]
     Dosage: 20 MG, 1X/DAY
     Route: 048
     Dates: start: 20090326
  18. ADALAT L [Concomitant]
     Dosage: 20 MG,2 D
     Route: 048
     Dates: start: 20090327
  19. HUMALOG [Concomitant]
     Dosage: 24 UNITS DAILY; 10 UNITS IN MORNING,8 UNITS IN DAYTIME AND 6 UNITS IN EVENING (1 IN 1D)
     Route: 058
     Dates: start: 20090401
  20. BAYASPIRIN [Concomitant]
     Dosage: 100 MG,1 D
     Route: 048
     Dates: start: 20090308
  21. PURSENNID [Concomitant]
     Dosage: 24 MG, 1X/DAY
     Route: 048
     Dates: start: 20090603
  22. SULFAMETHOXAZOLE W/TRIMETHOPRIM [Concomitant]
     Dosage: 1 DF, 1X/DAY
     Route: 048
     Dates: start: 20090717
  23. ZYLORIC [Concomitant]
     Dosage: 100 MG, 1X/DAY
     Route: 048
     Dates: start: 20090520
  24. ISODINE [Concomitant]
     Dosage: DOSAGE ADJUSTED
     Route: 049
     Dates: start: 20090327
  25. SOLU-MEDRONE [Concomitant]
     Dosage: 500 MG, 1X/DAY
     Route: 041
     Dates: start: 20090608, end: 20090610
  26. SPANIDIN [Concomitant]
     Dosage: 300 MG, 1X/DAY
     Route: 041
     Dates: start: 20090615, end: 20090621
  27. SPANIDIN [Concomitant]
     Dosage: 300 MG, 1X/DAY
     Route: 041
     Dates: start: 20090624, end: 20090626
  28. SPANIDIN [Concomitant]
     Dosage: 300 MG, 1X/DAY
     Route: 041
     Dates: start: 20090817, end: 20090823
  29. ORTHOCLONE OKT3 [Concomitant]
     Dosage: 5 MG, 1X/DAY
     Route: 042
     Dates: start: 20090715, end: 20090722
  30. SELBEX [Concomitant]
     Dosage: 50 MG, 3X/DAY
     Route: 048
     Dates: start: 20091208, end: 20091212
  31. SOLETON [Concomitant]
     Dosage: 240 MG, 1X/DAY
     Route: 048
     Dates: start: 20091208, end: 20091212
  32. MYONAL [Concomitant]
     Dosage: 50 MG, 3X/DAY
     Route: 048
     Dates: start: 20091208, end: 20091212

REACTIONS (25)
  - Cytomegalovirus test positive [Recovered/Resolved]
  - Herpes zoster [Recovered/Resolved]
  - Herpes zoster [Recovered/Resolved]
  - Pyuria [Recovered/Resolved]
  - Pyrexia [Recovered/Resolved]
  - Pancytopenia [Recovered/Resolved]
  - Kidney transplant rejection [Recovered/Resolved]
  - Diabetes mellitus [Unknown]
  - Hyperkalaemia [Recovered/Resolved]
  - Hyperuricaemia [Unknown]
  - Acne [Unknown]
  - Dermal cyst [Recovered/Resolved]
  - Hypertension [Unknown]
  - Back pain [Unknown]
  - Nasopharyngitis [Recovered/Resolved]
  - Constipation [Recovered/Resolved]
  - Nephrogenic anaemia [Unknown]
  - Acne [Recovered/Resolved]
  - Influenza like illness [Recovered/Resolved]
  - Hypervolaemia [Recovered/Resolved]
  - Hypervolaemia [Recovered/Resolved]
  - Iron deficiency anaemia [Unknown]
  - Pyuria [Recovered/Resolved]
  - Stomatitis [Recovered/Resolved]
  - Vomiting [Recovered/Resolved]
